FAERS Safety Report 9837948 (Version 5)
Quarter: 2015Q2

REPORT INFORMATION
  Report Type: Spontaneous
  Country: US (occurrence: US)
  Receive Date: 20140123
  Receipt Date: 20150623
  Transmission Date: 20150821
  Serious: Yes (Hospitalization)
  Sender: FDA-Public Use
  Company Number: US-BAYER-2014-010290

PATIENT
  Age: 26 Year
  Sex: Female
  Weight: 77.98 kg

DRUGS (8)
  1. MIRENA [Suspect]
     Active Substance: LEVONORGESTREL
     Indication: CONTRACEPTION
     Dosage: 20 MCG/24HR, CONT
     Route: 015
     Dates: start: 20100409, end: 20100806
  2. IBUPROFEN. [Concomitant]
     Active Substance: IBUPROFEN
     Indication: PAIN
     Dosage: 600 MG,EVERY 8 HOURS PRN
     Dates: start: 20100714
  3. MIRENA [Suspect]
     Active Substance: LEVONORGESTREL
     Indication: MENORRHAGIA
  4. VICODIN [Concomitant]
     Active Substance: ACETAMINOPHEN\HYDROCODONE BITARTRATE
     Indication: PAIN
     Dosage: UNK
     Dates: start: 20100714
  5. PRENATAL VITAMINS [Concomitant]
     Active Substance: VITAMINS
     Dosage: DAILY
     Dates: start: 20100714
  6. ACETAMINOPHEN. [Concomitant]
     Active Substance: ACETAMINOPHEN
     Dosage: 500 MG, Q4HR
  7. CEPHALEXIN. [Concomitant]
     Active Substance: CEPHALEXIN
     Dosage: 4 TIMES PER DAY FOR 10 DAYS
     Dates: start: 20100714
  8. HYDROCODONE W/ACETAMINOPHEN [Concomitant]
     Active Substance: ACETAMINOPHEN\HYDROCODONE BITARTRATE
     Indication: PAIN
     Dosage: 5-500 MG EVERY 6 HOURS
     Dates: start: 20100714

REACTIONS (5)
  - Pain [None]
  - Uterine perforation [None]
  - Injury [None]
  - Drug ineffective [None]
  - Device issue [None]

NARRATIVE: CASE EVENT DATE: 201004
